FAERS Safety Report 21153340 (Version 6)
Quarter: 2022Q4

REPORT INFORMATION
  Report Type: Spontaneous
  Country: US (occurrence: US)
  Receive Date: 20220731
  Receipt Date: 20221223
  Transmission Date: 20230112
  Serious: No
  Sender: FDA-Public Use
  Company Number: US-JNJFOC-20220750037

PATIENT
  Age: 64 Year
  Sex: Male
  Weight: 97.610 kg

DRUGS (23)
  1. TREMFYA [Suspect]
     Active Substance: GUSELKUMAB
     Indication: Psoriatic arthropathy
     Route: 065
     Dates: start: 202203
  2. TREMFYA [Suspect]
     Active Substance: GUSELKUMAB
     Route: 065
     Dates: start: 202206
  3. CRESTOR [Concomitant]
     Active Substance: ROSUVASTATIN CALCIUM
     Indication: Blood cholesterol increased
  4. ALLOPURINOL [Concomitant]
     Active Substance: ALLOPURINOL
     Indication: Psoriatic arthropathy
  5. ATENOLOL [Concomitant]
     Active Substance: ATENOLOL
  6. WELLBUTRIN [Concomitant]
     Active Substance: BUPROPION HYDROCHLORIDE
  7. CYMBALTA [Concomitant]
     Active Substance: DULOXETINE HYDROCHLORIDE
  8. CHLORZOXAZONE [Concomitant]
     Active Substance: CHLORZOXAZONE
     Indication: Muscle spasms
  9. PLAVIX [Concomitant]
     Active Substance: CLOPIDOGREL BISULFATE
     Indication: Coronary arterial stent insertion
  10. MULTAQ [Concomitant]
     Active Substance: DRONEDARONE
  11. ZETIA [Concomitant]
     Active Substance: EZETIMIBE
  12. FERROUS SULFATE [Concomitant]
     Active Substance: FERROUS SULFATE
  13. LASIX [Concomitant]
     Active Substance: FUROSEMIDE
  14. HYDROCODONE [Concomitant]
     Active Substance: HYDROCODONE
  15. UNITHROID [Concomitant]
     Active Substance: LEVOTHYROXINE SODIUM
  16. MAGNESIUM OXIDE [Concomitant]
     Active Substance: MAGNESIUM OXIDE
  17. METFORMIN [Concomitant]
     Active Substance: METFORMIN HYDROCHLORIDE
  18. SINGULAIR [Concomitant]
     Active Substance: MONTELUKAST SODIUM
     Indication: Perfume sensitivity
  19. PANTOPRAZOLE [Concomitant]
     Active Substance: PANTOPRAZOLE
     Indication: Gastrooesophageal reflux disease
  20. SUCRALFATE [Concomitant]
     Active Substance: SUCRALFATE
  21. POTASSIUM [Concomitant]
     Active Substance: POTASSIUM
  22. PROAIR HFA [Concomitant]
     Active Substance: ALBUTEROL SULFATE
  23. BECLOMETHASONE DIPROPIONATE [Concomitant]
     Active Substance: BECLOMETHASONE DIPROPIONATE

REACTIONS (5)
  - Needle issue [Unknown]
  - Accidental exposure to product [Unknown]
  - Product dose omission issue [Unknown]
  - General physical health deterioration [Unknown]
  - Gastric disorder [Unknown]

NARRATIVE: CASE EVENT DATE: 20220724
